FAERS Safety Report 15690077 (Version 2)
Quarter: 2018Q4

REPORT INFORMATION
  Report Type: Spontaneous
  Country: CA (occurrence: CA)
  Receive Date: 20181205
  Receipt Date: 20181205
  Transmission Date: 20190205
  Serious: Yes (Other)
  Sender: FDA-Public Use
  Company Number: CA-CELLTRION INC.-2016CA014062

PATIENT

DRUGS (11)
  1. INFLECTRA [Suspect]
     Active Substance: INFLIXIMAB-DYYB
     Indication: ANKYLOSING SPONDYLITIS
     Dosage: 156 MG, EVERY 2, 6 WEEKS THEN EVERY 8 WEEKS FOR 6 MONTHS
     Route: 042
     Dates: start: 20161206
  2. INFLECTRA [Suspect]
     Active Substance: INFLIXIMAB-DYYB
     Dosage: 156 MG, EVERY 8 WEEKS
     Route: 042
     Dates: start: 20180604
  3. INFLECTRA [Suspect]
     Active Substance: INFLIXIMAB-DYYB
     Dosage: 162 MG, EVERY 8 WEEKS
     Route: 042
     Dates: start: 20180924
  4. SOLU-CORTEF [Concomitant]
     Active Substance: HYDROCORTISONE SODIUM SUCCINATE
     Dosage: 100 MG
     Route: 042
     Dates: start: 20180604
  5. INFLECTRA [Suspect]
     Active Substance: INFLIXIMAB-DYYB
     Dosage: 156 MG, Q 0,2,6 WEEKS THEN EVERY 8 WEEKS
     Route: 042
     Dates: start: 20171220
  6. INFLECTRA [Suspect]
     Active Substance: INFLIXIMAB-DYYB
     Dosage: 162 MG, EVERY 8 WEEKS
     Route: 042
     Dates: start: 20181122
  7. DIPHENHYDRAMINE                    /00000402/ [Concomitant]
     Active Substance: DIPHENHYDRAMINE
  8. INFLECTRA [Suspect]
     Active Substance: INFLIXIMAB-DYYB
     Dosage: 156 MG, CYCLIC (THEN EVERY 8 WEEKS)
     Route: 042
     Dates: start: 20180413
  9. INFLECTRA [Suspect]
     Active Substance: INFLIXIMAB-DYYB
     Dosage: 156 MG, EVERY 8 WEEKS
     Route: 042
     Dates: start: 20180730
  10. TYLENOL [Concomitant]
     Active Substance: ACETAMINOPHEN
     Dosage: 325 MG
     Route: 048
  11. INFLECTRA [Suspect]
     Active Substance: INFLIXIMAB-DYYB
     Dosage: 156 MG, CYCLIC THEN EVERY 8 WEEKS
     Route: 042
     Dates: start: 20161206

REACTIONS (2)
  - Product use issue [Unknown]
  - Blood pressure fluctuation [Not Recovered/Not Resolved]

NARRATIVE: CASE EVENT DATE: 20170508
